FAERS Safety Report 13134321 (Version 2)
Quarter: 2017Q2

REPORT INFORMATION
  Report Type: Other
  Country: DK (occurrence: DK)
  Receive Date: 20170120
  Receipt Date: 20170518
  Transmission Date: 20170830
  Serious: Yes (Hospitalization, Other)
  Sender: FDA-Public Use
  Company Number: DK-CELLTRION INC.-2017DK000488

PATIENT

DRUGS (7)
  1. REMSIMA [Suspect]
     Active Substance: INFLIXIMAB
     Dosage: 500 MG, 6 WEEKS
     Route: 042
     Dates: start: 20170508, end: 20170508
  2. REMSIMA [Suspect]
     Active Substance: INFLIXIMAB
     Dosage: 500 MG, AS NECESSARY
     Route: 042
     Dates: start: 2016, end: 2016
  3. REMSIMA [Suspect]
     Active Substance: INFLIXIMAB
     Indication: PSORIATIC ARTHROPATHY
     Dosage: 500 MG, AS NECESSARY
     Route: 042
     Dates: start: 20161003, end: 20161003
  4. REMSIMA [Suspect]
     Active Substance: INFLIXIMAB
     Dosage: 500 MG, 6 WEEKS
     Route: 042
     Dates: start: 20170327, end: 20170327
  5. REMSIMA [Suspect]
     Active Substance: INFLIXIMAB
     Dosage: 500 MG, AS NECESSARY
     Route: 042
     Dates: start: 20170103, end: 20170103
  6. METHOTREXATE. [Concomitant]
     Active Substance: METHOTREXATE
     Indication: PRODUCT USED FOR UNKNOWN INDICATION
     Dosage: UNK
     Route: 048
     Dates: start: 20170322, end: 20170508
  7. REMSIMA [Suspect]
     Active Substance: INFLIXIMAB
     Dosage: 500 MG, 6 WEEKS
     Route: 042
     Dates: start: 20170223, end: 20170223

REACTIONS (3)
  - Thrombocytopenia [Recovered/Resolved]
  - Inappropriate schedule of drug administration [Unknown]
  - Infusion related reaction [Recovered/Resolved]

NARRATIVE: CASE EVENT DATE: 20161107
